FAERS Safety Report 23664170 (Version 1)
Quarter: 2024Q1

REPORT INFORMATION
  Report Type: Spontaneous
  Country: ES (occurrence: ES)
  Receive Date: 20240322
  Receipt Date: 20240322
  Transmission Date: 20240410
  Serious: Yes (Other)
  Sender: FDA-Public Use
  Company Number: ES-MYLANLABS-2024M1023139

PATIENT
  Age: 13 Year
  Sex: Female

DRUGS (1)
  1. TOPAMAX [Suspect]
     Active Substance: TOPIRAMATE
     Indication: Epilepsy
     Dosage: UNK
     Route: 048

REACTIONS (2)
  - Renal tubular acidosis [Recovering/Resolving]
  - Hallucination [Recovering/Resolving]
